FAERS Safety Report 4957538-8 (Version None)
Quarter: 2006Q1

REPORT INFORMATION
  Report Type: 
  Country: None (occurrence: None)
  Receive Date: 20060330
  Receipt Date: 20060201
  Transmission Date: 20060701
  Serious: No
  Sender: FDA-Public Use
  Company Number: US-GLAXOSMITHKLINE-A0591916A

PATIENT
  Age: 73 Year
  Sex: Female

DRUGS (3)
  1. FLOVENT [Suspect]
     Indication: ASTHMA
     Dosage: 2PUFF TWICE PER DAY
     Route: 055
     Dates: start: 20051101
  2. ADVAIR DISKUS 100/50 [Concomitant]
  3. HEART MEDICATION [Concomitant]

REACTIONS (1)
  - CANDIDIASIS [None]
